FAERS Safety Report 25864424 (Version 1)
Quarter: 2025Q3

REPORT INFORMATION
  Report Type: Spontaneous
  Country: US (occurrence: US)
  Receive Date: 20250930
  Receipt Date: 20250930
  Transmission Date: 20251021
  Serious: Yes (Other)
  Sender: APOTEX
  Company Number: US-APOTEX-2025AP030475

PATIENT
  Age: 38 Year
  Sex: Male

DRUGS (9)
  1. NILOTINIB [Suspect]
     Active Substance: NILOTINIB
     Indication: Acute myeloid leukaemia
     Route: 065
  2. NILOTINIB [Suspect]
     Active Substance: NILOTINIB
     Route: 065
  3. NILOTINIB [Suspect]
     Active Substance: NILOTINIB
     Route: 065
  4. NILOTINIB [Suspect]
     Active Substance: NILOTINIB
     Route: 065
  5. NILOTINIB [Suspect]
     Active Substance: NILOTINIB
     Route: 065
  6. EMTRICITABINE\TENOFOVIR [Suspect]
     Active Substance: EMTRICITABINE\TENOFOVIR
     Indication: Product used for unknown indication
     Route: 065
  7. DASATINIB [Suspect]
     Active Substance: DASATINIB
     Indication: Acute myeloid leukaemia
     Route: 065
  8. DASATINIB [Suspect]
     Active Substance: DASATINIB
     Route: 065
  9. DOLUTEGRAVIR [Suspect]
     Active Substance: DOLUTEGRAVIR
     Indication: Product used for unknown indication
     Route: 065

REACTIONS (4)
  - Neutropenia [Recovered/Resolved]
  - Thrombocytopenia [Recovered/Resolved]
  - Lung disorder [Unknown]
  - Treatment noncompliance [Unknown]
